FAERS Safety Report 7978881-4 (Version None)
Quarter: 2011Q4

REPORT INFORMATION
  Report Type: 
  Country: None (occurrence: None)
  Receive Date: 20111214
  Receipt Date: 20111208
  Transmission Date: 20120403
  Serious: Yes (Death, Other)
  Sender: FDA-Public Use
  Company Number: US-SANOFI-AVENTIS-2011SA080600

PATIENT
  Age: 77 Year
  Sex: Male

DRUGS (1)
  1. ELOXATIN [Suspect]
     Indication: RECTAL CANCER STAGE III
     Route: 065

REACTIONS (4)
  - DEATH [None]
  - BLOOD MAGNESIUM DECREASED [None]
  - DIARRHOEA [None]
  - DEHYDRATION [None]
